FAERS Safety Report 20012417 (Version 2)
Quarter: 2021Q4

REPORT INFORMATION
  Report Type: Report from Study
  Country: GB (occurrence: GB)
  Receive Date: 20211029
  Receipt Date: 20211129
  Transmission Date: 20220303
  Serious: Yes (Hospitalization)
  Sender: FDA-Public Use
  Company Number: GB-KYOWAKIRIN-2021BKK018106

PATIENT

DRUGS (2)
  1. CRYSVITA [Suspect]
     Active Substance: BUROSUMAB-TWZA
     Indication: Product used for unknown indication
     Dosage: 50 MG, 4 WKLY
     Route: 065
     Dates: end: 2021
  2. CRYSVITA [Suspect]
     Active Substance: BUROSUMAB-TWZA
     Dosage: 50 MG, 4 WKLY
     Route: 065
     Dates: start: 2021

REACTIONS (6)
  - Intervertebral disc protrusion [Unknown]
  - Fall [Unknown]
  - Hypoaesthesia [Recovering/Resolving]
  - Osteoarthritis [Unknown]
  - Swelling [Unknown]
  - Contusion [Unknown]

NARRATIVE: CASE EVENT DATE: 20210101
